FAERS Safety Report 24449974 (Version 1)
Quarter: 2024Q4

REPORT INFORMATION
  Report Type: Spontaneous
  Country: US (occurrence: None)
  Receive Date: 20241016
  Receipt Date: 20241016
  Transmission Date: 20250115
  Serious: Yes (Death)
  Sender: Public
  Company Number: None

PATIENT
  Age: 89 Year
  Sex: Female
  Weight: 56.7 kg

DRUGS (1)
  1. TREMFYA [Suspect]
     Active Substance: GUSELKUMAB
     Indication: Psoriasis
     Dosage: OTHER FREQUENCY : WK0ANDWK4ASDIR;?INJECT 100MG SUBCUTANEOUSLY AT WEEK 0 AND WEEK 4 AS DIRECTED.?
     Route: 058
     Dates: start: 202310

REACTIONS (1)
  - Death [None]
